FAERS Safety Report 6636203-5 (Version None)
Quarter: 2010Q1

REPORT INFORMATION
  Report Type: 
  Country: None (occurrence: None)
  Receive Date: 20100310
  Receipt Date: 20100125
  Transmission Date: 20100710
  Serious: Yes (Death, Life-Threatening)
  Sender: FDA-Public Use
  Company Number: 2010SP005160

PATIENT
  Age: 83 Year
  Sex: Female

DRUGS (5)
  1. ORGARAN [Suspect]
     Indication: HEPARIN-INDUCED THROMBOCYTOPENIA
     Dosage: SC;IV
     Route: 058
     Dates: start: 20091016, end: 20091017
  2. ORGARAN [Suspect]
     Indication: HEPARIN-INDUCED THROMBOCYTOPENIA
     Dosage: SC;IV
     Route: 058
     Dates: start: 20091019
  3. CALCIPARINE [Suspect]
     Indication: THROMBOSIS PROPHYLAXIS
     Dosage: SC
     Route: 058
     Dates: start: 20091002, end: 20091014
  4. RISPERDAL (CON.) [Concomitant]
  5. PARACETAMOL (CON.) [Concomitant]

REACTIONS (18)
  - ANTIBODY TEST POSITIVE [None]
  - ARTERIAL THROMBOSIS LIMB [None]
  - C-REACTIVE PROTEIN INCREASED [None]
  - CEREBROVASCULAR ACCIDENT [None]
  - CHRONIC MYELOMONOCYTIC LEUKAEMIA [None]
  - CYANOSIS [None]
  - DEEP VEIN THROMBOSIS [None]
  - EXTENSOR PLANTAR RESPONSE [None]
  - FALL [None]
  - GENERAL PHYSICAL HEALTH DETERIORATION [None]
  - LEUKOCYTOSIS [None]
  - MYDRIASIS [None]
  - MYOCLONUS [None]
  - NYSTAGMUS [None]
  - REFUSAL OF TREATMENT BY PATIENT [None]
  - THROMBOCYTOPENIA [None]
  - THROMBOSIS [None]
  - TREATMENT FAILURE [None]
